FAERS Safety Report 22629573 (Version 1)
Quarter: 2023Q2

REPORT INFORMATION
  Report Type: Spontaneous
  Country: US (occurrence: US)
  Receive Date: 20230622
  Receipt Date: 20230622
  Transmission Date: 20230722
  Serious: Yes (Hospitalization)
  Sender: FDA-Public Use
  Company Number: US-CTI BIOPHARMA-2023US03741

PATIENT

DRUGS (14)
  1. VONJO [Suspect]
     Active Substance: PACRITINIB
     Indication: Myelodysplastic syndrome
     Dosage: 100 MG, BID
     Route: 048
     Dates: start: 20230523
  2. ATORVASTATIN [Suspect]
     Active Substance: ATORVASTATIN
     Dosage: UNK
     Dates: end: 2023
  3. AMIODARONE [Concomitant]
     Active Substance: AMIODARONE
  4. ALLOPURINOL [Concomitant]
     Active Substance: ALLOPURINOL
  5. TYLENOL [Concomitant]
     Active Substance: ACETAMINOPHEN
  6. AMLODIPINE [Concomitant]
     Active Substance: AMLODIPINE BESYLATE
  7. BUMETANIDE [Concomitant]
     Active Substance: BUMETANIDE
  8. ELIQUIS [Concomitant]
     Active Substance: APIXABAN
  9. LISINOPRIL [Concomitant]
     Active Substance: LISINOPRIL
  10. VITAMINS [Concomitant]
     Active Substance: VITAMINS
  11. SENNOSIDES A AND B [Concomitant]
     Active Substance: SENNOSIDES A AND B
  12. SERTRALINE [Concomitant]
     Active Substance: SERTRALINE HYDROCHLORIDE
  13. VENTOLIN [Concomitant]
     Active Substance: ALBUTEROL SULFATE
  14. JARDIANCE [Concomitant]
     Active Substance: EMPAGLIFLOZIN

REACTIONS (3)
  - Dehydration [Unknown]
  - Blood creatinine increased [Recovered/Resolved]
  - Drug interaction [Unknown]

NARRATIVE: CASE EVENT DATE: 20230601
